FAERS Safety Report 9703096 (Version 2)
Quarter: 2013Q4

REPORT INFORMATION
  Report Type: Spontaneous
  Country: US (occurrence: US)
  Receive Date: 20131122
  Receipt Date: 20131122
  Transmission Date: 20140711
  Serious: No
  Sender: FDA-Public Use
  Company Number: US-BIOGENIDEC-2012BI045281

PATIENT
  Sex: Female

DRUGS (1)
  1. AVONEX [Suspect]
     Indication: MULTIPLE SCLEROSIS
     Route: 030
     Dates: start: 20120423

REACTIONS (4)
  - Liver disorder [Unknown]
  - Injection site atrophy [Recovered/Resolved]
  - Hepatic enzyme abnormal [Recovered/Resolved]
  - Hepatic enzyme increased [Unknown]
